FAERS Safety Report 8485594-1 (Version None)
Quarter: 2012Q3

REPORT INFORMATION
  Report Type: 
  Country: None (occurrence: None)
  Receive Date: 20120703
  Receipt Date: 20120622
  Transmission Date: 20120928
  Serious: Yes (Hospitalization)
  Sender: FDA-Public Use
  Company Number: CO-ELI_LILLY_AND_COMPANY-CO201206008106

PATIENT
  Age: 78 Year
  Sex: Female

DRUGS (8)
  1. HUMULIN R [Suspect]
     Dosage: 15 IU, QD
  2. LOVASTATIN [Concomitant]
  3. HYDROCHLOROTHIAZDE TAB [Concomitant]
  4. LOSARTAN POTASSIUM [Concomitant]
  5. OXYCODONE HCL [Concomitant]
  6. RANITIDINE [Concomitant]
  7. FLUOXETINE [Concomitant]
  8. FORTEO [Suspect]
     Indication: OSTEOPOROSIS
     Dosage: 20 UG, UNK
     Route: 058
     Dates: start: 20101201

REACTIONS (6)
  - COUGH [None]
  - BACK PAIN [None]
  - CHEST PAIN [None]
  - INFLUENZA [None]
  - AMNESIA [None]
  - APPETITE DISORDER [None]
